FAERS Safety Report 5141225-X (Version None)
Quarter: 2006Q4

REPORT INFORMATION
  Report Type: 
  Country: None (occurrence: None)
  Receive Date: 20061026
  Receipt Date: 20061011
  Transmission Date: 20070319
  Serious: Yes (Hospitalization)
  Sender: FDA-Public Use
  Company Number: 2006128047

PATIENT
  Age: 42 Year
  Sex: Female

DRUGS (1)
  1. BEXTRA [Suspect]

REACTIONS (11)
  - ARTHROPATHY [None]
  - BONE FISSURE [None]
  - CHONDROMALACIA [None]
  - DRUG HYPERSENSITIVITY [None]
  - GAIT DISTURBANCE [None]
  - JOINT DISLOCATION [None]
  - JOINT EFFUSION [None]
  - ROTATOR CUFF SYNDROME [None]
  - STEVENS-JOHNSON SYNDROME [None]
  - WALKING AID USER [None]
  - WEIGHT BEARING DIFFICULTY [None]
